FAERS Safety Report 7529073-4 (Version None)
Quarter: 2011Q2

REPORT INFORMATION
  Report Type: 
  Country: None (occurrence: None)
  Receive Date: 20110607
  Receipt Date: 20110603
  Transmission Date: 20111010
  Serious: Yes (Other)
  Sender: FDA-Public Use
  Company Number: US-AMGEN-QUU397834

PATIENT
  Sex: Female
  Weight: 79 kg

DRUGS (8)
  1. FEXOFENADINE HCL [Concomitant]
     Dosage: UNK UNK, UNK
  2. EZETIMIBE [Concomitant]
     Dosage: UNK UNK, UNK
  3. FISH OIL [Concomitant]
     Dosage: UNK UNK, UNK
  4. LEVOTHYROXINE SODIUM [Concomitant]
     Dosage: UNK UNK, UNK
  5. VALSARTAN [Concomitant]
     Dosage: UNK UNK, UNK
  6. ALENDRONATE SODIUM [Concomitant]
     Dosage: UNK UNK, UNK
  7. NPLATE [Suspect]
     Indication: IDIOPATHIC THROMBOCYTOPENIC PURPURA
     Dosage: UNK A?G/KG, UNK
     Dates: start: 20090513, end: 20110420
  8. LANSOPRAZOLE [Concomitant]
     Dosage: UNK UNK, UNK

REACTIONS (2)
  - THERAPEUTIC RESPONSE DECREASED [None]
  - NEOPLASM MALIGNANT [None]
